FAERS Safety Report 23289215 (Version 3)
Quarter: 2024Q1

REPORT INFORMATION
  Report Type: Spontaneous
  Country: US (occurrence: US)
  Receive Date: 20231212
  Receipt Date: 20240107
  Transmission Date: 20240409
  Serious: Yes (Hospitalization)
  Sender: FDA-Public Use
  Company Number: US-BAXTER-2023BAX037503

PATIENT
  Age: 16 Year
  Sex: Male
  Weight: 52.9 kg

DRUGS (2)
  1. CYCLOPHOSPHAMIDE [Suspect]
     Active Substance: CYCLOPHOSPHAMIDE
     Indication: Lymphodepletion
     Dosage: 1000 MG/M2/DAY
     Route: 042
     Dates: start: 20231018, end: 20231020
  2. FLUDARABINE [Suspect]
     Active Substance: FLUDARABINE PHOSPHATE
     Indication: Lymphodepletion
     Dosage: 30 MG/M2/DAY, (C1D-6)
     Route: 042
     Dates: start: 20231017, end: 20231020

REACTIONS (11)
  - Otitis externa [Recovered/Resolved]
  - Ear pain [Recovered/Resolved]
  - Pain [Recovered/Resolved]
  - Ear canal erythema [Recovered/Resolved]
  - Otorrhoea [Recovered/Resolved]
  - Headache [Unknown]
  - Sensitive skin [Unknown]
  - Odynophagia [Unknown]
  - Escherichia infection [Unknown]
  - Sinusitis [Unknown]
  - Pyrexia [Recovered/Resolved]

NARRATIVE: CASE EVENT DATE: 20231119
